FAERS Safety Report 6531272-5 (Version None)
Quarter: 2010Q1

REPORT INFORMATION
  Report Type: 
  Country: None (occurrence: None)
  Receive Date: 20100108
  Receipt Date: 20100104
  Transmission Date: 20100710
  Serious: Yes (Death)
  Sender: FDA-Public Use
  Company Number: IL-NOVOPROD-302738

PATIENT
  Age: 89 Year
  Sex: Female

DRUGS (1)
  1. NOVOSEVEN [Suspect]
     Indication: HAEMORRHAGE
     Dosage: 8.4 MG, QD
     Route: 042
     Dates: start: 20091209, end: 20091212

REACTIONS (1)
  - HAEMORRHAGE [None]
